FAERS Safety Report 19465020 (Version 2)
Quarter: 2021Q2

REPORT INFORMATION
  Report Type: Spontaneous
  Country: US (occurrence: US)
  Receive Date: 20210626
  Receipt Date: 20210626
  Transmission Date: 20210717
  Serious: No
  Sender: FDA-Public Use
  Company Number: NVSC2021US142993

PATIENT
  Sex: Male

DRUGS (1)
  1. VOLTAREN [Suspect]
     Active Substance: DICLOFENAC SODIUM
     Indication: PRODUCT USED FOR UNKNOWN INDICATION
     Dosage: UNK (ONCE)
     Route: 065
     Dates: start: 20210601, end: 20210602

REACTIONS (3)
  - Pain [Unknown]
  - Erythema [Unknown]
  - Rash erythematous [Unknown]

NARRATIVE: CASE EVENT DATE: 20210601
